FAERS Safety Report 18313927 (Version 3)
Quarter: 2020Q4

REPORT INFORMATION
  Report Type: Report from Study
  Country: None (occurrence: AU)
  Receive Date: 20200925
  Receipt Date: 20201008
  Transmission Date: 20210113
  Serious: Yes (Other)
  Sender: FDA-Public Use
  Company Number: AU-ABBVIE-20K-008-3568993-00

PATIENT
  Age: 63 Year
  Sex: Female

DRUGS (5)
  1. NYSTATIN. [Suspect]
     Active Substance: NYSTATIN
     Indication: CYSTITIS
     Dosage: DROPS
     Route: 048
     Dates: start: 20200914
  2. URAL [Concomitant]
     Indication: BLADDER DISORDER
     Dosage: WHEN NEEDED
  3. PREDNISONE. [Suspect]
     Active Substance: PREDNISONE
     Indication: ANAEMIA
     Route: 065
     Dates: start: 20200825
  4. ELIQUIS [Concomitant]
     Active Substance: APIXABAN
     Indication: ANTICOAGULANT THERAPY
     Dosage: TWICE A DAY
  5. IMBRUVICA [Suspect]
     Active Substance: IBRUTINIB
     Indication: CHRONIC LYMPHOCYTIC LEUKAEMIA
     Route: 048
     Dates: start: 20200827

REACTIONS (7)
  - Cystitis [Not Recovered/Not Resolved]
  - Jaundice [Not Recovered/Not Resolved]
  - Dyspnoea [Not Recovered/Not Resolved]
  - Mouth swelling [Unknown]
  - Muscle spasms [Recovering/Resolving]
  - Fatigue [Not Recovered/Not Resolved]
  - Urticaria [Unknown]

NARRATIVE: CASE EVENT DATE: 20200915
